FAERS Safety Report 14290251 (Version 1)
Quarter: 2017Q4

REPORT INFORMATION
  Report Type: Report from Study
  Country: IE (occurrence: IE)
  Receive Date: 20171215
  Receipt Date: 20171215
  Transmission Date: 20180321
  Serious: Yes (Hospitalization)
  Sender: FDA-Public Use
  Company Number: US-ASTRAZENECA-2017SF27455

PATIENT
  Age: 55 Day
  Sex: Male

DRUGS (4)
  1. SYNAGIS [Suspect]
     Active Substance: PALIVIZUMAB
     Indication: PREMATURE BABY
     Dosage: 15.0MG/KG UNKNOWN
     Route: 030
     Dates: start: 20171207
  2. GALFER [Concomitant]
     Active Substance: IRON
     Indication: PRODUCT USED FOR UNKNOWN INDICATION
     Route: 050
  3. ABIDEC [Concomitant]
     Indication: PRODUCT USED FOR UNKNOWN INDICATION
     Route: 050
  4. SYNAGIS [Suspect]
     Active Substance: PALIVIZUMAB
     Indication: PREMATURE BABY
     Dosage: 15.0MG/KG UNKNOWN
     Route: 030
     Dates: start: 20171108, end: 20171108

REACTIONS (1)
  - Respiratory tract infection viral [Recovered/Resolved]

NARRATIVE: CASE EVENT DATE: 20171120
